FAERS Safety Report 8225679-8 (Version None)
Quarter: 2012Q1

REPORT INFORMATION
  Report Type: 
  Country: None (occurrence: None)
  Receive Date: 20120321
  Receipt Date: 20120312
  Transmission Date: 20120608
  Serious: Yes (Hospitalization)
  Sender: FDA-Public Use
  Company Number: DE-ELI_LILLY_AND_COMPANY-DE201203003288

PATIENT
  Age: 44 Year
  Sex: Male

DRUGS (3)
  1. CORTISONE ACETATE [Concomitant]
     Dosage: 10 MG, UNK
  2. CORTISONE ACETATE [Concomitant]
     Dosage: 70 MG, UNK
  3. FORTEO [Suspect]
     Indication: OSTEOPOROSIS
     Dosage: UNK
     Dates: start: 20111201

REACTIONS (3)
  - SINUS DISORDER [None]
  - FEELING ABNORMAL [None]
  - DRUG DOSE OMISSION [None]
